FAERS Safety Report 10169346 (Version 1)
Quarter: 2014Q2

REPORT INFORMATION
  Report Type: Spontaneous
  Country: US (occurrence: US)
  Receive Date: 20140513
  Receipt Date: 20140513
  Transmission Date: 20141212
  Serious: No
  Sender: FDA-Public Use
  Company Number: US-PFIZER INC-2014128371

PATIENT
  Sex: Female

DRUGS (10)
  1. NORVASC [Suspect]
     Dosage: UNK
  2. AMOXICILLIN [Suspect]
     Dosage: UNK
  3. LIPITOR [Suspect]
     Dosage: UNK
  4. XALATAN [Suspect]
     Dosage: UNK
  5. LOSARTAN POTASSIUM [Suspect]
     Dosage: UNK
  6. MORPHINE SULFATE [Suspect]
     Dosage: UNK
  7. LISINOPRIL [Suspect]
     Dosage: UNK
  8. TRAVATAN [Suspect]
     Dosage: UNK
  9. FLEXERIL [Suspect]
     Dosage: UNK
  10. CAPTOPRIL [Suspect]
     Dosage: UNK

REACTIONS (1)
  - Drug hypersensitivity [Unknown]
